FAERS Safety Report 15721151 (Version 2)
Quarter: 2019Q1

REPORT INFORMATION
  Report Type: Spontaneous
  Country: US (occurrence: US)
  Receive Date: 20181214
  Receipt Date: 20190329
  Transmission Date: 20190417
  Serious: Yes (Other)
  Sender: FDA-Public Use
  Company Number: US-BAXTER-2018BAX030248

PATIENT
  Sex: Female

DRUGS (1)
  1. DIANEAL LOW CALCIUM PERITONEAL DIALYSIS SOLUTION WITH DEXTROSE [Suspect]
     Active Substance: CALCIUM CHLORIDE\DEXTROSE\MAGNESIUM CHLORIDE\SODIUM CHLORIDE\SODIUM LACTATE
     Indication: PERITONEAL DIALYSIS
     Route: 033

REACTIONS (22)
  - Nasal congestion [Unknown]
  - Throat irritation [Unknown]
  - Fungal infection [Unknown]
  - Procedural pain [Unknown]
  - Diabetes mellitus [Unknown]
  - Diarrhoea [Unknown]
  - Anaemia [Unknown]
  - Rhinorrhoea [Unknown]
  - Vision blurred [Unknown]
  - Abdominal distension [Unknown]
  - Chest pain [Unknown]
  - Dyspnoea [Unknown]
  - Paraesthesia [Unknown]
  - Insomnia [Unknown]
  - Fatigue [Unknown]
  - Muscle spasms [Unknown]
  - Tinnitus [Unknown]
  - Hiccups [Unknown]
  - Localised infection [Unknown]
  - Blood electrolytes abnormal [Unknown]
  - Pigmentation disorder [Unknown]
  - Abdominal pain upper [Unknown]
